FAERS Safety Report 21373052 (Version 2)
Quarter: 2022Q4

REPORT INFORMATION
  Report Type: Spontaneous
  Country: JP (occurrence: JP)
  Receive Date: 20220924
  Receipt Date: 20221016
  Transmission Date: 20230113
  Serious: Yes (Other)
  Sender: FDA-Public Use
  Company Number: JP-CHUGAI-2022036384

PATIENT
  Age: 36 Year

DRUGS (1)
  1. KADCYLA [Suspect]
     Active Substance: ADO-TRASTUZUMAB EMTANSINE
     Indication: Breast cancer
     Dosage: UNK
     Route: 041

REACTIONS (3)
  - Non-Hodgkin^s lymphoma [Unknown]
  - Cytopenia [Recovered/Resolved]
  - Splenomegaly [Recovered/Resolved]

NARRATIVE: CASE EVENT DATE: 20220715
